FAERS Safety Report 5515776-X (Version None)
Quarter: 2007Q4

REPORT INFORMATION
  Report Type: 
  Country: None (occurrence: None)
  Receive Date: 20071109
  Receipt Date: 20071026
  Transmission Date: 20080405
  Serious: Yes (Death)
  Sender: FDA-Public Use
  Company Number: GXKR2007GB09231

PATIENT
  Age: 20 Year
  Sex: Male

DRUGS (6)
  1. ASPIRIN [Suspect]
  2. PARACETAMOL (NGX)(PARACETAMOL) UNKNOWN [Suspect]
  3. CLOBAZAM (CLOBAZAM) [Concomitant]
  4. PHENYTOIN [Concomitant]
  5. PRIMIDONE [Concomitant]
  6. PROCHLORPERAZINE MALEATE [Concomitant]

REACTIONS (10)
  - BRAIN OEDEMA [None]
  - DISSEMINATED INTRAVASCULAR COAGULATION [None]
  - DRUG TOXICITY [None]
  - ENCEPHALOPATHY [None]
  - HAEMATEMESIS [None]
  - HAEMODIALYSIS [None]
  - HEPATIC NECROSIS [None]
  - MULTIPLE DRUG OVERDOSE INTENTIONAL [None]
  - RENAL FAILURE [None]
  - SEPSIS [None]
